FAERS Safety Report 13596067 (Version 1)
Quarter: 2017Q2

REPORT INFORMATION
  Report Type: Spontaneous
  Country: US (occurrence: US)
  Receive Date: 20170531
  Receipt Date: 20170531
  Transmission Date: 20170830
  Serious: No
  Sender: FDA-Public Use
  Company Number: US-JNJFOC-20170312216

PATIENT
  Sex: Female
  Weight: 61.24 kg

DRUGS (10)
  1. TYLENOL REGULAR STRENGTH [Suspect]
     Active Substance: ACETAMINOPHEN
     Indication: INTERVERTEBRAL DISC PROTRUSION
     Route: 048
  2. RAMIPRIL. [Concomitant]
     Active Substance: RAMIPRIL
     Indication: HYPERTENSION
     Dosage: 10.5, 5 YEARS
     Route: 065
  3. TYLENOL REGULAR STRENGTH [Suspect]
     Active Substance: ACETAMINOPHEN
     Indication: PAIN
     Route: 048
  4. CITRACAL [Concomitant]
     Active Substance: CALCIUM CITRATE
     Indication: ROUTINE HEALTH MAINTENANCE
     Dosage: DAILY
     Route: 065
  5. PREMARIN [Concomitant]
     Active Substance: ESTROGENS, CONJUGATED
     Indication: VULVOVAGINAL DRYNESS
     Dosage: 2X WEEKLY
     Route: 065
  6. SYNTHROID [Concomitant]
     Active Substance: LEVOTHYROXINE SODIUM
     Indication: THYROID DISORDER
     Dosage: 0.075, 10 YEARS
     Route: 065
  7. ATORVASTATIN [Concomitant]
     Active Substance: ATORVASTATIN
     Indication: BLOOD CHOLESTEROL INCREASED
     Dosage: 10 YEARS
     Route: 065
  8. CRANBERRY. [Concomitant]
     Active Substance: CRANBERRY
     Indication: ROUTINE HEALTH MAINTENANCE
     Dosage: DAILY
     Route: 065
  9. RESTASIS [Concomitant]
     Active Substance: CYCLOSPORINE
     Indication: DRY EYE
     Dosage: 0.05
     Route: 065
  10. ASPIRIN. [Concomitant]
     Active Substance: ASPIRIN
     Indication: CARDIAC DISORDER
     Dosage: 10 YEARS
     Route: 065

REACTIONS (4)
  - Nausea [Not Recovered/Not Resolved]
  - Feeling abnormal [Not Recovered/Not Resolved]
  - Abdominal discomfort [Not Recovered/Not Resolved]
  - Product use in unapproved indication [Unknown]
